FAERS Safety Report 9555842 (Version 1)
Quarter: 2013Q3

REPORT INFORMATION
  Report Type: Spontaneous
  Country: US (occurrence: None)
  Receive Date: 20130726
  Receipt Date: 20130726
  Transmission Date: 20140515
  Serious: Yes (Hospitalization)
  Sender: FDA-Public Use
  Company Number: UTC-023571

PATIENT
  Age: 70 Year
  Sex: Female
  Weight: 87 kg

DRUGS (8)
  1. REMODULIN [Suspect]
     Route: 058
     Dates: start: 20120412, end: 20120916
  2. CARDIZEM (DILTIAZEM  HYDROCHLORIDE) [Concomitant]
  3. BUMETANIDE [Concomitant]
  4. SIMVASTATIN [Concomitant]
  5. COUMADIN (WARFARIN SODIUM) [Concomitant]
  6. VENTAVIS (ILOPROST) [Concomitant]
  7. REVATIO (SILDENAFIL CITRATE) [Concomitant]
  8. TRACLEER (BOSENTAN) [Concomitant]

REACTIONS (7)
  - Infusion site warmth [None]
  - Feeling cold [None]
  - Cold sweat [None]
  - Vomiting [None]
  - Infusion site pain [None]
  - Infusion site erythema [None]
  - Device dislocation [None]
